FAERS Safety Report 7824159-9 (Version None)
Quarter: 2011Q4

REPORT INFORMATION
  Report Type: 
  Country: None (occurrence: None)
  Receive Date: 20111019
  Receipt Date: 20111012
  Transmission Date: 20120403
  Serious: Yes (Hospitalization)
  Sender: FDA-Public Use
  Company Number: US-ACTELION-A-US2011-54623

PATIENT

DRUGS (3)
  1. TRACLEER [Suspect]
     Indication: EISENMENGER'S SYNDROME
     Dosage: UNK
     Route: 048
     Dates: start: 20040101
  2. ADCIRCA [Concomitant]
  3. VENTAVIS [Concomitant]
     Indication: PULMONARY ARTERIAL HYPERTENSION
     Dosage: UNK
     Route: 055
     Dates: start: 20080101

REACTIONS (8)
  - SWELLING [None]
  - RASH [None]
  - DEHYDRATION [None]
  - WEIGHT INCREASED [None]
  - NASAL INFLAMMATION [None]
  - OEDEMA PERIPHERAL [None]
  - BLOOD CREATININE INCREASED [None]
  - EPISTAXIS [None]
